FAERS Safety Report 10466969 (Version 3)
Quarter: 2015Q1

REPORT INFORMATION
  Report Type: Spontaneous
  Country: US (occurrence: US)
  Receive Date: 20140922
  Receipt Date: 20150331
  Transmission Date: 20150720
  Serious: Yes (Death, Hospitalization, Other)
  Sender: FDA-Public Use
  Company Number: US-009507513-1409USA009883

PATIENT
  Sex: Female
  Weight: 52.15 kg

DRUGS (4)
  1. OMEPRAZOLE. [Concomitant]
     Active Substance: OMEPRAZOLE
     Indication: GASTROOESOPHAGEAL REFLUX DISEASE
     Dosage: UNK
     Dates: start: 20061212, end: 20121217
  2. JANUVIA [Suspect]
     Active Substance: SITAGLIPTIN PHOSPHATE
     Dosage: 100 MG, UNK
     Route: 048
     Dates: start: 20120512, end: 20121012
  3. JANUVIA [Suspect]
     Active Substance: SITAGLIPTIN PHOSPHATE
     Indication: TYPE 2 DIABETES MELLITUS
     Dosage: 50 MG, QD
     Route: 048
     Dates: start: 20090323, end: 20120624
  4. LIPITOR [Concomitant]
     Active Substance: ATORVASTATIN CALCIUM
     Indication: HYPERCHOLESTEROLAEMIA
     Dosage: UNK
     Dates: start: 20080205, end: 20111115

REACTIONS (10)
  - Bile duct stent insertion [Unknown]
  - Metastases to liver [Unknown]
  - Lymphadenopathy [Unknown]
  - Abdominal hernia [Unknown]
  - Constipation [Unknown]
  - Adenocarcinoma of colon [Unknown]
  - Ascites [Unknown]
  - Diplopia [Recovered/Resolved]
  - Adenocarcinoma pancreas [Fatal]
  - Colectomy [Unknown]

NARRATIVE: CASE EVENT DATE: 200903
